FAERS Safety Report 13062647 (Version 1)
Quarter: 2016Q4

REPORT INFORMATION
  Report Type: Spontaneous
  Country: KR (occurrence: KR)
  Receive Date: 20161226
  Receipt Date: 20161226
  Transmission Date: 20170207
  Serious: Yes (Death, Hospitalization, Other)
  Sender: FDA-Public Use
  Company Number: KR-009507513-1612KOR012834

PATIENT
  Age: 65 Year
  Sex: Female

DRUGS (2)
  1. KEYTRUDA [Suspect]
     Active Substance: PEMBROLIZUMAB
     Indication: MALIGNANT MELANOMA
     Dosage: UNK
     Dates: start: 20160705, end: 20160906
  2. EPACADOSTAT [Concomitant]
     Active Substance: EPACADOSTAT
     Dosage: UNK
     Dates: start: 20160705, end: 20160906

REACTIONS (3)
  - Pleural effusion [Recovering/Resolving]
  - Malignant neoplasm progression [Fatal]
  - Dyspnoea [Unknown]

NARRATIVE: CASE EVENT DATE: 2016
